FAERS Safety Report 6040665-4 (Version None)
Quarter: 2009Q1

REPORT INFORMATION
  Report Type: 
  Country: None (occurrence: None)
  Receive Date: 20090116
  Receipt Date: 20080529
  Transmission Date: 20090719
  Serious: Yes (Other)
  Sender: FDA-Public Use
  Company Number: US-BRISTOL-MYERS SQUIBB COMPANY-14173215

PATIENT
  Age: 12 Year
  Sex: Female

DRUGS (3)
  1. ABILIFY [Suspect]
     Indication: BIPOLAR DISORDER
     Dosage: INCREASED FROM 2.5MG TO 5MG AND AFTER 4 DAYS REDUCED TO 2.5MG.
     Route: 048
     Dates: start: 20080408
  2. ABILIFY [Suspect]
     Indication: MAJOR DEPRESSION
     Dosage: INCREASED FROM 2.5MG TO 5MG AND AFTER 4 DAYS REDUCED TO 2.5MG.
     Route: 048
     Dates: start: 20080408
  3. PROZAC [Suspect]
     Dates: start: 20080313

REACTIONS (1)
  - DYSTONIA [None]
